FAERS Safety Report 23669606 (Version 1)
Quarter: 2024Q1

REPORT INFORMATION
  Report Type: Spontaneous
  Country: US (occurrence: None)
  Receive Date: 20240325
  Receipt Date: 20240325
  Transmission Date: 20240410
  Serious: Yes (Hospitalization)
  Sender: FDA-Public Use
  Company Number: None

PATIENT
  Sex: Male

DRUGS (1)
  1. VIGABATRIN [Suspect]
     Active Substance: VIGABATRIN
     Indication: Epilepsy
     Dosage: DOSE/AMOUNT: MIX 2 PACKETS IN 20ML WATER AND GIVE 20ML VIA GTUBE EVERY MORNING. MIX 3 PACKETS IN30M
     Route: 050
     Dates: start: 201811

REACTIONS (2)
  - Respiratory disorder [None]
  - Incorrect dose administered [None]
